FAERS Safety Report 7668739-2 (Version None)
Quarter: 2011Q3

REPORT INFORMATION
  Report Type: 
  Country: None (occurrence: None)
  Receive Date: 20110808
  Receipt Date: 20110729
  Transmission Date: 20111222
  Serious: Yes (Hospitalization, Other)
  Sender: FDA-Public Use
  Company Number: US-AMGEN-USASP2011030664

PATIENT
  Age: 45 Year
  Sex: Female
  Weight: 74 kg

DRUGS (2)
  1. ENBREL [Suspect]
     Dosage: 50 MG, QWK
     Dates: start: 20110420
  2. ENBREL [Suspect]
     Indication: ANKYLOSING SPONDYLITIS
     Dosage: 50 MG, QWK
     Dates: start: 20020101

REACTIONS (7)
  - OESOPHAGEAL DISORDER [None]
  - INJECTION SITE PAIN [None]
  - HIATUS HERNIA [None]
  - GASTRIC HYPOMOTILITY [None]
  - NEEDLE ISSUE [None]
  - HEPATIC ENZYME INCREASED [None]
  - DRUG HYPERSENSITIVITY [None]
